FAERS Safety Report 4780668-0 (Version None)
Quarter: 2005Q3

REPORT INFORMATION
  Report Type: 
  Country: None (occurrence: None)
  Receive Date: 20050927
  Receipt Date: 20050926
  Transmission Date: 20060218
  Serious: Yes (Hospitalization)
  Sender: FDA-Public Use
  Company Number: AU-MERCK-0509AUS00133

PATIENT
  Age: 95 Year
  Sex: Female
  Weight: 90 kg

DRUGS (7)
  1. ZETIA [Suspect]
     Route: 048
     Dates: start: 20050615
  2. AMLODIPINE BESYLATE [Suspect]
     Indication: ESSENTIAL HYPERTENSION
     Route: 048
     Dates: start: 20050615, end: 20050713
  3. RAMIPRIL [Concomitant]
     Route: 065
  4. MEDROXYPROGESTERONE ACETATE [Concomitant]
     Route: 065
  5. OXAZEPAM [Concomitant]
     Route: 065
  6. CALCIUM CARBONATE [Concomitant]
     Route: 065
  7. WARFARIN SODIUM [Concomitant]
     Route: 065

REACTIONS (2)
  - FLUID OVERLOAD [None]
  - LIVER FUNCTION TEST ABNORMAL [None]
